FAERS Safety Report 5232564-2 (Version None)
Quarter: 2007Q1

REPORT INFORMATION
  Report Type: 
  Country: None (occurrence: None)
  Receive Date: 20070206
  Receipt Date: 20070206
  Transmission Date: 20070707
  Serious: Yes (Hospitalization)
  Sender: FDA-Public Use
  Company Number: None

PATIENT
  Sex: Female

DRUGS (2)
  1. HYDROXYCHLOROQUINE SULFATE [Suspect]
     Indication: RHEUMATOID ARTHRITIS
     Dosage: 200 MG DAILY PO
     Route: 048
     Dates: end: 20061227
  2. HYDROXYCHLOROQUINE SULFATE [Suspect]
     Indication: RHEUMATOID ARTHRITIS
     Dosage: 200 MG DAILY PO
     Route: 048
     Dates: end: 20070114

REACTIONS (3)
  - MUSCULAR WEAKNESS [None]
  - NEUROMYOPATHY [None]
  - PAIN IN EXTREMITY [None]
